FAERS Safety Report 5795504-3 (Version None)
Quarter: 2008Q2

REPORT INFORMATION
  Report Type: 
  Country: None (occurrence: None)
  Receive Date: 20080630
  Receipt Date: 20080617
  Transmission Date: 20081010
  Serious: Yes (Other)
  Sender: FDA-Public Use
  Company Number: PHHY2008FR11566

PATIENT
  Sex: Female

DRUGS (2)
  1. TEGRETOL [Suspect]
     Indication: BIPOLAR I DISORDER
     Dosage: 400 MG DAILY
     Route: 048
     Dates: start: 20080501
  2. TEGRETOL [Suspect]
     Dosage: 200 MG DAILY
     Route: 048

REACTIONS (6)
  - DIPLOPIA [None]
  - DIZZINESS [None]
  - PRURITUS [None]
  - TACHYCARDIA [None]
  - TREMOR [None]
  - WEIGHT INCREASED [None]
